FAERS Safety Report 15938970 (Version 1)
Quarter: 2019Q1

REPORT INFORMATION
  Report Type: Spontaneous
  Country: US (occurrence: US)
  Receive Date: 20190208
  Receipt Date: 20190208
  Transmission Date: 20190417
  Serious: No
  Sender: FDA-Public Use
  Company Number: US-PFIZER INC-2019041418

PATIENT
  Sex: Male

DRUGS (2)
  1. LYRICA [Suspect]
     Active Substance: PREGABALIN
     Indication: POST HERPETIC NEURALGIA
     Dosage: UNK (FOR TWO DAYS, NOT CONSECUTIVELY, A TOTAL OF 625MG)
  2. LYRICA [Suspect]
     Active Substance: PREGABALIN
     Dosage: 25 MG, UNK (625MG ALL TOGETHER OVER 2 DAYS)

REACTIONS (2)
  - Intentional product misuse [Unknown]
  - Drug ineffective [Unknown]
